FAERS Safety Report 8085646-4 (Version None)
Quarter: 2012Q1

REPORT INFORMATION
  Report Type: 
  Country: None (occurrence: None)
  Receive Date: 20120128
  Receipt Date: 20110404
  Transmission Date: 20120608
  Serious: No
  Sender: FDA-Public Use
  Company Number: US-ABBOTT-11P-163-0716397-00

PATIENT
  Sex: Female
  Weight: 81.72 kg

DRUGS (3)
  1. IBUPROFEN [Concomitant]
     Indication: PRODUCT USED FOR UNKNOWN INDICATION
     Route: 048
  2. METHOTREXATE [Concomitant]
     Indication: RHEUMATOID ARTHRITIS
     Dosage: 0.6ML-1 IN 1 WEEKS
     Route: 058
  3. HUMIRA [Suspect]
     Indication: RHEUMATOID ARTHRITIS
     Route: 058
     Dates: start: 20100901, end: 20110301

REACTIONS (3)
  - FEELING ABNORMAL [None]
  - HEADACHE [None]
  - NAUSEA [None]
